FAERS Safety Report 4313185-2 (Version None)
Quarter: 2004Q1

REPORT INFORMATION
  Report Type: 
  Country: None (occurrence: None)
  Receive Date: 20040304
  Receipt Date: 20040218
  Transmission Date: 20041129
  Serious: Yes (Hospitalization)
  Sender: FDA-Public Use
  Company Number: A03200400399

PATIENT
  Age: 73 Year
  Sex: Female
  Weight: 62.1428 kg

DRUGS (7)
  1. PLAVIX [Suspect]
     Indication: ANTICOAGULANT THERAPY
     Dosage: 75 MG QD - ORAL
     Route: 048
     Dates: start: 20030101
  2. PLAVIX [Suspect]
     Indication: SURGERY
     Dosage: 75 MG QD - ORAL
     Route: 048
     Dates: start: 20030101
  3. METOPROLOL TARTRATE [Concomitant]
  4. HMG-COA REDUCTASE INHIBITOR [Concomitant]
  5. GLYCERYL TRINITRATE [Concomitant]
  6. FUROSEMIDE [Concomitant]
  7. ASPIRIN [Concomitant]

REACTIONS (4)
  - ALOPECIA [None]
  - DYSPNOEA [None]
  - LOSS OF CONSCIOUSNESS [None]
  - PULMONARY OEDEMA [None]
